FAERS Safety Report 9034671 (Version 1)
Quarter: 2013Q1

REPORT INFORMATION
  Report Type: Spontaneous
  Country: US (occurrence: None)
  Receive Date: 20130116
  Receipt Date: 20130116
  Transmission Date: 20140127
  Serious: Yes (Other)
  Sender: FDA-Public Use
  Company Number: None

PATIENT
  Age: 35 Year
  Sex: Female
  Weight: 79.5 kg

DRUGS (1)
  1. OXYTOCIN [Suspect]
     Indication: INDUCED LABOUR
     Route: 041
     Dates: start: 20130111, end: 20130111

REACTIONS (1)
  - Drug ineffective [None]
